FAERS Safety Report 17828650 (Version 1)
Quarter: 2020Q2

REPORT INFORMATION
  Report Type: Spontaneous
  Country: US (occurrence: US)
  Receive Date: 20200527
  Receipt Date: 20200527
  Transmission Date: 20200714
  Serious: No
  Sender: FDA-Public Use
  Company Number: US-LUPIN PHARMACEUTICALS INC.-2020-01308

PATIENT
  Age: 62 Year
  Sex: Male
  Weight: 96.15 kg

DRUGS (2)
  1. PLAVIX [Concomitant]
     Active Substance: CLOPIDOGREL BISULFATE
     Indication: PRODUCT USED FOR UNKNOWN INDICATION
     Dosage: UNK
     Route: 065
  2. BUDESONIDE INHALATION SUSPENSION, 0.5 MG/2 ML [Suspect]
     Active Substance: BUDESONIDE
     Indication: NASAL SINUS IRRIGATION
     Dosage: UNK UNK, QD
     Route: 048

REACTIONS (2)
  - Intercepted product dispensing error [Unknown]
  - No adverse event [Unknown]

NARRATIVE: CASE EVENT DATE: 20200304
